FAERS Safety Report 24015352 (Version 2)
Quarter: 2024Q3

REPORT INFORMATION
  Report Type: Spontaneous
  Country: PT (occurrence: PT)
  Receive Date: 20240626
  Receipt Date: 20240730
  Transmission Date: 20241016
  Serious: Yes (Other)
  Sender: ORGANON
  Company Number: PT-ORGANON-O2406PRT002211

PATIENT
  Age: 25 Year
  Sex: Female

DRUGS (1)
  1. ETONOGESTREL [Suspect]
     Active Substance: ETONOGESTREL
     Dosage: 1 IMPLANT, LEFT UPPER ARM
     Route: 065
     Dates: start: 20240604, end: 20240625

REACTIONS (5)
  - Device expulsion [Recovered/Resolved]
  - Implant site injury [Unknown]
  - Implant site infection [Unknown]
  - Device placement issue [Recovered/Resolved]
  - Wrong technique in product usage process [Unknown]

NARRATIVE: CASE EVENT DATE: 20240601
